FAERS Safety Report 24575467 (Version 2)
Quarter: 2025Q4

REPORT INFORMATION
  Report Type: Spontaneous
  Country: US (occurrence: US)
  Receive Date: 20241104
  Receipt Date: 20251120
  Transmission Date: 20260117
  Serious: No
  Sender: TRAVERE THERAPEUTICS
  Company Number: US-TRAVERE-2024TVT01045

PATIENT
  Sex: Female

DRUGS (1)
  1. FILSPARI [Suspect]
     Active Substance: SPARSENTAN
     Indication: Haematuria
     Route: 048
     Dates: start: 20240503

REACTIONS (4)
  - Product use in unapproved indication [Unknown]
  - Dyspnoea exertional [Recovered/Resolved]
  - Fatigue [Unknown]
  - Generalised oedema [Unknown]
